FAERS Safety Report 17115954 (Version 3)
Quarter: 2020Q1

REPORT INFORMATION
  Report Type: Spontaneous
  Country: US (occurrence: US)
  Receive Date: 20191205
  Receipt Date: 20200213
  Transmission Date: 20200409
  Serious: No
  Sender: FDA-Public Use
  Company Number: US-PFIZER INC-2019524043

PATIENT
  Age: 74 Year
  Sex: Female

DRUGS (6)
  1. PREMARIN [Suspect]
     Active Substance: ESTROGENS, CONJUGATED
     Dosage: UNK, 2X/WEEK (LESS THAN 1/2 GRAM 2 TIMES A WEEK)
     Route: 067
     Dates: start: 20191003
  2. ATORVASTATIN [Concomitant]
     Active Substance: ATORVASTATIN
     Dosage: UNK
     Dates: start: 2000
  3. METHENAMINE [Suspect]
     Active Substance: METHENAMINE
     Indication: CYSTITIS INTERSTITIAL
     Dosage: 1 G, 2X/DAY
     Dates: start: 20190730
  4. OMEPRAZOLE. [Concomitant]
     Active Substance: OMEPRAZOLE
     Dosage: UNK
     Dates: start: 2010
  5. PREMARIN [Suspect]
     Active Substance: ESTROGENS, CONJUGATED
     Indication: PROPHYLAXIS URINARY TRACT INFECTION
     Dosage: UNK
     Route: 067
     Dates: start: 20191005
  6. METHENAMINE [Suspect]
     Active Substance: METHENAMINE
     Indication: PROPHYLAXIS URINARY TRACT INFECTION

REACTIONS (9)
  - Condition aggravated [Recovered/Resolved]
  - Nausea [Recovered/Resolved]
  - Malaise [Recovered/Resolved]
  - Off label use [Unknown]
  - Product use in unapproved indication [Unknown]
  - Balance disorder [Recovered/Resolved]
  - Dizziness [Recovered/Resolved]
  - Vulvovaginal burning sensation [Recovered/Resolved]
  - Urticaria [Not Recovered/Not Resolved]

NARRATIVE: CASE EVENT DATE: 20191003
